FAERS Safety Report 24063026 (Version 2)
Quarter: 2025Q3

REPORT INFORMATION
  Report Type: Spontaneous
  Country: US (occurrence: US)
  Receive Date: 20240709
  Receipt Date: 20250829
  Transmission Date: 20251021
  Serious: No
  Sender: CHATTEM
  Company Number: US-OPELLA-2024OHG021426

PATIENT
  Age: 84 Year
  Sex: Female

DRUGS (1)
  1. NASACORT ALLERGY 24HR [Suspect]
     Active Substance: TRIAMCINOLONE ACETONIDE
     Indication: Product used for unknown indication
     Dates: start: 2022, end: 20240617

REACTIONS (1)
  - Epistaxis [Not Recovered/Not Resolved]
